FAERS Safety Report 5759207-3 (Version None)
Quarter: 2008Q2

REPORT INFORMATION
  Report Type: 
  Country: None (occurrence: None)
  Receive Date: 20080604
  Receipt Date: 20080526
  Transmission Date: 20081010
  Serious: Yes (Other)
  Sender: FDA-Public Use
  Company Number: FR-PFIZER INC-2008044561

PATIENT
  Sex: Female
  Weight: 86 kg

DRUGS (5)
  1. CELEBREX [Suspect]
     Indication: BACK PAIN
     Route: 048
     Dates: start: 20080321, end: 20080327
  2. CORDARONE [Concomitant]
     Indication: ARRHYTHMIA
     Dosage: TEXT:1 DOSE FORM
     Route: 048
  3. VALSARTAN AND HYDROCHLOROTHIAZIDE [Concomitant]
     Indication: HYPERTENSION
     Dosage: DAILY DOSE:160MG
     Route: 048
  4. PREVISCAN [Concomitant]
     Indication: ARRHYTHMIA
     Route: 048
  5. VIT K ANTAGONISTS [Concomitant]

REACTIONS (2)
  - INTERSTITIAL LUNG DISEASE [None]
  - PURPURA [None]
